FAERS Safety Report 11539432 (Version 1)
Quarter: 2015Q3

REPORT INFORMATION
  Report Type: Spontaneous
  Country: FR (occurrence: FR)
  Receive Date: 20150923
  Receipt Date: 20150923
  Transmission Date: 20151125
  Serious: Yes (Hospitalization)
  Sender: FDA-Public Use
  Company Number: FR-SA-2015SA141030

PATIENT
  Age: 71 Year
  Sex: Female

DRUGS (15)
  1. ATACAND [Suspect]
     Active Substance: CANDESARTAN CILEXETIL
     Indication: HYPERTENSION
     Route: 048
  2. ALLOPURINOL. [Concomitant]
     Active Substance: ALLOPURINOL
     Dosage: FREQUENCY:1.0.0; STRENGTH: 200 MG
  3. AMLOR [Concomitant]
     Active Substance: AMLODIPINE BESYLATE
     Dosage: FREQUENCY:1.0. 0; STRENGTH: 5 MG
  4. SECTRAL [Concomitant]
     Active Substance: ACEBUTOLOL HYDROCHLORIDE
     Dosage: FREQUENCY:1. 0. 1; STRENGTH: 400 MG
  5. LASILIX [Suspect]
     Active Substance: FUROSEMIDE
     Indication: HYPERTENSION
     Route: 065
  6. SPIRONOLACTONE. [Concomitant]
     Active Substance: SPIRONOLACTONE
     Dosage: FREQUENCY: 1.0.0; STRENGTH: 25 MG
  7. PREVISCAN [Concomitant]
     Active Substance: FLUINDIONE
     Dates: start: 20130414
  8. ADANCOR [Concomitant]
     Active Substance: NICORANDIL
     Dosage: STRENGTH: 10 MG; FREQUENCY: 1.0.1
  9. EFFERALGAN CODEINE [Concomitant]
     Active Substance: ACETAMINOPHEN\CODEINE PHOSPHATE
     Dosage: FREQUENCY: 2.2.2
  10. DUROGESIC [Concomitant]
     Active Substance: FENTANYL
     Dosage: FORM: PATCH; DOSE: 12 GAMMA PER DAY
  11. OFLOCET [Suspect]
     Active Substance: OFLOXACIN
     Indication: COUGH
     Route: 048
     Dates: start: 20130405
  12. GLUCOPHAGE [Concomitant]
     Active Substance: METFORMIN HYDROCHLORIDE
     Dosage: FREQUENCY:1. 0 .1; STRENGTH: 1000 MG
  13. GLUCOPHAGE [Concomitant]
     Active Substance: METFORMIN HYDROCHLORIDE
     Dosage: DOSE AND FREQUENCY: 850MGX2METFORMIN 850MGX2 / DAY THEN DECREASED TO 500 MGX2 /DAY
  14. PREVISCAN [Concomitant]
     Active Substance: FLUINDIONE
     Dosage: 1.0 .0 AND 1+1/4.0.0 ALTERNATING
     Dates: end: 20130409
  15. DIFFU K [Concomitant]
     Active Substance: POTASSIUM CHLORIDE
     Dosage: FREQUENCY: 1.0.0

REACTIONS (2)
  - Acute kidney injury [Recovered/Resolved]
  - Hyperkalaemia [Recovered/Resolved]

NARRATIVE: CASE EVENT DATE: 20130409
